FAERS Safety Report 8225141-2 (Version None)
Quarter: 2012Q1

REPORT INFORMATION
  Report Type: 
  Country: None (occurrence: None)
  Receive Date: 20120307
  Receipt Date: 20090910
  Transmission Date: 20120608
  Serious: No
  Sender: FDA-Public Use
  Company Number: PHEH2009US11101

PATIENT
  Sex: Female

DRUGS (1)
  1. AFINITOR [Suspect]
     Dates: start: 20090701

REACTIONS (12)
  - NAUSEA [None]
  - MALAISE [None]
  - ORAL PAIN [None]
  - EPISTAXIS [None]
  - PAIN IN EXTREMITY [None]
  - COUGH [None]
  - JOINT SWELLING [None]
  - DIARRHOEA [None]
  - PRURITUS [None]
  - DECREASED APPETITE [None]
  - DYSGEUSIA [None]
  - OEDEMA PERIPHERAL [None]
